FAERS Safety Report 10394736 (Version 1)
Quarter: 2014Q3

REPORT INFORMATION
  Report Type: Spontaneous
  Country: US (occurrence: US)
  Receive Date: 20140820
  Receipt Date: 20140820
  Transmission Date: 20150326
  Serious: Yes (Hospitalization, Other)
  Sender: FDA-Public Use
  Company Number: US-PFIZER INC-2014226661

PATIENT
  Age: 56 Year
  Sex: Female
  Weight: 137 kg

DRUGS (5)
  1. BUMEX [Concomitant]
     Active Substance: BUMETANIDE
     Dosage: 2 MG, 2X/DAY
     Route: 048
  2. LETAIRIS [Concomitant]
     Active Substance: AMBRISENTAN
     Dosage: 10 MG, DAILY
     Route: 048
  3. ALDACTONE [Concomitant]
     Active Substance: SPIRONOLACTONE
     Dosage: UNK
  4. VIAGRA [Suspect]
     Active Substance: SILDENAFIL CITRATE
     Indication: PULMONARY HYPERTENSION
     Dosage: 20 MG, 3X/DAY
     Route: 048
  5. DIGOXIN. [Concomitant]
     Active Substance: DIGOXIN
     Dosage: 0.25 MG, DAILY
     Route: 048

REACTIONS (7)
  - Weight increased [Unknown]
  - Oedema peripheral [Unknown]
  - Off label use [Unknown]
  - Dizziness [Unknown]
  - Sleep apnoea syndrome [Unknown]
  - Fluid retention [Unknown]
  - Cor pulmonale [Unknown]

NARRATIVE: CASE EVENT DATE: 2014
